FAERS Safety Report 8867326 (Version 1)
Quarter: 2012Q4

REPORT INFORMATION
  Report Type: 
  Country: US (occurrence: US)
  Receive Date: 20121025
  Receipt Date: 20121025
  Transmission Date: 20130627
  Serious: No
  Sender: FDA-Public Use
  Company Number: US-AMGEN-USASP2012015971

PATIENT
  Age: 42 Year
  Sex: Male

DRUGS (1)
  1. ENBREL [Suspect]
     Indication: PSORIASIS
     Dosage: 50 mg, 2 times/wk
     Dates: start: 20090101

REACTIONS (5)
  - Toothache [Recovered/Resolved]
  - Salivary gland pain [Recovered/Resolved]
  - Neck pain [Recovered/Resolved]
  - Psoriasis [Not Recovered/Not Resolved]
  - Ear infection [Recovered/Resolved]
